FAERS Safety Report 17817782 (Version 1)
Quarter: 2020Q2

REPORT INFORMATION
  Report Type: Spontaneous
  Country: FR (occurrence: FR)
  Receive Date: 20200522
  Receipt Date: 20200522
  Transmission Date: 20200714
  Serious: Yes (Death)
  Sender: FDA-Public Use
  Company Number: FR-MYLANLABS-2020M1050889

PATIENT
  Age: 55 Year
  Sex: Male
  Weight: 61.6 kg

DRUGS (11)
  1. OXYCODONE [Concomitant]
     Active Substance: OXYCODONE
     Dosage: UNK
  2. OXYNORMORO [Concomitant]
     Active Substance: OXYCODONE HYDROCHLORIDE
     Dosage: UNK
  3. TINZAPARINE SODIQUE [Concomitant]
     Active Substance: TINZAPARIN SODIUM
     Dosage: UNK
  4. BROMAZEPAM [Concomitant]
     Active Substance: BROMAZEPAM
     Dosage: UNK
  5. FUROSEMIDE. [Concomitant]
     Active Substance: FUROSEMIDE
     Dosage: UNK
  6. PREDNISOLONE. [Suspect]
     Active Substance: PREDNISOLONE
     Indication: SQUAMOUS CELL CARCINOMA OF LUNG
     Dosage: 100 MILLIGRAM, QD
     Route: 048
     Dates: start: 20200319, end: 20200403
  7. ACIDE FOLIQUE [Concomitant]
     Active Substance: FOLIC ACID
     Dosage: UNK
  8. GABAPENTINE [Concomitant]
     Active Substance: GABAPENTIN
     Dosage: UNK
  9. CETIRIZINE                         /00884302/ [Concomitant]
     Active Substance: CETIRIZINE HYDROCHLORIDE
     Dosage: UNK
  10. SERESTA [Concomitant]
     Active Substance: OXAZEPAM
     Dosage: UNK
  11. PARACETAMOL [Concomitant]
     Active Substance: ACETAMINOPHEN
     Dosage: UNK

REACTIONS (2)
  - COVID-19 [Fatal]
  - Condition aggravated [Fatal]

NARRATIVE: CASE EVENT DATE: 20200324
